FAERS Safety Report 7417416-1 (Version None)
Quarter: 2011Q2

REPORT INFORMATION
  Report Type: 
  Country: None (occurrence: None)
  Receive Date: 20110415
  Receipt Date: 20110404
  Transmission Date: 20111010
  Serious: Yes (Death)
  Sender: FDA-Public Use
  Company Number: TR-JNJFOC-20110405603

PATIENT

DRUGS (2)
  1. ITRACONAZOLE [Suspect]
     Indication: PROPHYLAXIS
     Route: 065
  2. COTRIM [Suspect]
     Indication: PROPHYLAXIS
     Route: 065

REACTIONS (1)
  - SEPSIS [None]
